FAERS Safety Report 15270888 (Version 1)
Quarter: 2018Q3

REPORT INFORMATION
  Report Type: Spontaneous
  Country: US (occurrence: US)
  Receive Date: 20180813
  Receipt Date: 20180813
  Transmission Date: 20181010
  Serious: No
  Sender: FDA-Public Use
  Company Number: US-JNJFOC-20180727138

PATIENT
  Sex: Female

DRUGS (2)
  1. ZYRTEC [Suspect]
     Active Substance: CETIRIZINE HYDROCHLORIDE
     Indication: PRURITUS
     Dosage: 1 TABLET 1X PER NIGHT, FOR 2 NIGHTS TOTAL
     Route: 048
     Dates: start: 20180718, end: 20180719
  2. ZYRTEC [Suspect]
     Active Substance: CETIRIZINE HYDROCHLORIDE
     Indication: RASH MACULAR
     Dosage: 1 TABLET 1X PER NIGHT, FOR 2 NIGHTS TOTAL
     Route: 048
     Dates: start: 20180718, end: 20180719

REACTIONS (2)
  - Gastric disorder [Not Recovered/Not Resolved]
  - Product use in unapproved indication [Unknown]

NARRATIVE: CASE EVENT DATE: 20180718
